FAERS Safety Report 15950446 (Version 2)
Quarter: 2019Q3

REPORT INFORMATION
  Report Type: Spontaneous
  Country: US (occurrence: US)
  Receive Date: 20190211
  Receipt Date: 20190819
  Transmission Date: 20191004
  Serious: Yes (Other)
  Sender: FDA-Public Use
  Company Number: US-MYLANLABS-2019M1008973

PATIENT
  Sex: Male

DRUGS (1)
  1. ALBUTEROL EXTENDED-RELEASE TABLETS, USP [Suspect]
     Active Substance: ALBUTEROL
     Indication: MYASTHENIA GRAVIS
     Dosage: UNK

REACTIONS (3)
  - Drug dependence [Unknown]
  - Product availability issue [Unknown]
  - Product use in unapproved indication [Unknown]
